FAERS Safety Report 6337151-0 (Version None)
Quarter: 2009Q3

REPORT INFORMATION
  Report Type: 
  Country: None (occurrence: None)
  Receive Date: 20090831
  Receipt Date: 20090813
  Transmission Date: 20100115
  Serious: Yes (Death, Hospitalization)
  Sender: FDA-Public Use
  Company Number: VAL_00266_2009

PATIENT
  Age: 62 Year
  Sex: Female

DRUGS (9)
  1. ROCALTROL [Suspect]
     Indication: DRUG USE FOR UNKNOWN INDICATION
     Dosage: (ORAL)
     Route: 048
  2. MARCUMAR [Suspect]
     Indication: DRUG USE FOR UNKNOWN INDICATION
     Dosage: (ORAL)
     Route: 048
  3. TORSEMIDE [Suspect]
     Indication: DRUG USE FOR UNKNOWN INDICATION
     Dosage: (10 MG QD ORAL)
     Route: 048
  4. AMARYL [Suspect]
     Indication: DRUG USE FOR UNKNOWN INDICATION
     Dosage: (2 MG QD ORAL)
     Route: 048
  5. CODIPRONT MONO (CODEINE POLISTIREX) [Suspect]
     Indication: DRUG USE FOR UNKNOWN INDICATION
     Dosage: (60 GTT QD ORAL)
     Route: 048
  6. DECORTIN H (PREDNISOLONE) [Suspect]
     Indication: DRUG USE FOR UNKNOWN INDICATION
     Dosage: (5 MG QD ORAL)
     Route: 048
  7. FENOFIBRATE [Suspect]
     Indication: DRUG USE FOR UNKNOWN INDICATION
     Dosage: (200 MG QD ORAL)
     Route: 048
  8. GLUCOBAY [Suspect]
     Indication: DRUG USE FOR UNKNOWN INDICATION
     Dosage: (100 MG TID ORAL)
     Route: 048
  9. TRACLEER [Suspect]
     Indication: DRUG USE FOR UNKNOWN INDICATION
     Dosage: (62.5 MG BID ORAL)
     Route: 048

REACTIONS (13)
  - ABDOMINAL PAIN [None]
  - ABDOMINAL SEPSIS [None]
  - ANURIA [None]
  - ASPARTATE AMINOTRANSFERASE INCREASED [None]
  - BLOOD CREATINE INCREASED [None]
  - BLOOD LACTATE DEHYDROGENASE INCREASED [None]
  - CARDIAC ARREST [None]
  - DRUG INTERACTION [None]
  - HEPATOTOXICITY [None]
  - HYPOGLYCAEMIA [None]
  - INTERNATIONAL NORMALISED RATIO INCREASED [None]
  - METABOLIC ACIDOSIS [None]
  - NEPHROPATHY TOXIC [None]
